FAERS Safety Report 17368723 (Version 2)
Quarter: 2020Q1

REPORT INFORMATION
  Report Type: Spontaneous
  Country: BR (occurrence: BR)
  Receive Date: 20200204
  Receipt Date: 20200226
  Transmission Date: 20200409
  Serious: Yes (Other)
  Sender: FDA-Public Use
  Company Number: NVSC2020BR026950

PATIENT
  Sex: Male
  Weight: 52 kg

DRUGS (13)
  1. REVOLADE [Suspect]
     Active Substance: ELTROMBOPAG
     Indication: PLATELET COUNT ABNORMAL
     Dosage: 50 MG, QD
     Route: 048
     Dates: start: 201908, end: 201912
  2. LOTAR [Concomitant]
     Active Substance: AMLODIPINE\LOSARTAN
     Indication: BLOOD PRESSURE INCREASED
     Dosage: 50 MG, QD
     Route: 048
  3. DEFERASIROX. [Concomitant]
     Active Substance: DEFERASIROX
     Indication: BLOOD IRON INCREASED
  4. DEFERASIROX. [Concomitant]
     Active Substance: DEFERASIROX
     Indication: TRANSFUSION
     Dosage: 500 MG, QD
     Route: 048
     Dates: start: 20190917
  5. VITAMIN B COMPLEX [Concomitant]
     Active Substance: CYANOCOBALAMIN\DEXPANTHENOL\NIACINAMIDE\PYRIDOXINE HYDROCHLORIDE\RIBOFLAVIN 5^-PHOSPHATE SODIUM\THIAMINE HYDROCHLORIDE\VITAMIN B COMPLEX
     Indication: SUPPLEMENTATION THERAPY
     Dosage: 6 GTT, QD
     Route: 065
     Dates: start: 201908
  6. DECADRON [Concomitant]
     Active Substance: DEXAMETHASONE
     Indication: PRODUCT USED FOR UNKNOWN INDICATION
     Dosage: 4 MG, QD
     Route: 048
  7. VONAU [Concomitant]
     Active Substance: ONDANSETRON HYDROCHLORIDE
     Indication: NAUSEA
     Dosage: 1 DF, QD
     Route: 065
     Dates: start: 201807
  8. VITAMIN D [Concomitant]
     Active Substance: VITAMIN D NOS
     Indication: SUPPLEMENTATION THERAPY
     Dosage: 8 GTT, QD
     Route: 048
     Dates: start: 201908
  9. MIRTAZAPINE. [Concomitant]
     Active Substance: MIRTAZAPINE
     Indication: DEPRESSION
     Dosage: 30 MG, QD
     Route: 048
     Dates: start: 201909
  10. ZOLPIDEM [Concomitant]
     Active Substance: ZOLPIDEM TARTRATE
     Indication: AMYOTROPHIC LATERAL SCLEROSIS
     Dosage: 10 MG, QD
     Route: 048
  11. REVOLADE [Suspect]
     Active Substance: ELTROMBOPAG
     Dosage: 150 MG, QD (3 TABLETS OF 50 MG)
     Route: 048
     Dates: start: 201912
  12. ZOLPIDEM [Concomitant]
     Active Substance: ZOLPIDEM TARTRATE
     Indication: PLATELET DISORDER
  13. OMEPRAZOLE. [Concomitant]
     Active Substance: OMEPRAZOLE
     Indication: OESOPHAGEAL PAIN
     Dosage: 20 MG, QD
     Route: 048

REACTIONS (2)
  - Platelet count decreased [Unknown]
  - Drug ineffective [Unknown]
